FAERS Safety Report 17985414 (Version 1)
Quarter: 2020Q3

REPORT INFORMATION
  Report Type: Spontaneous
  Country: FR (occurrence: FR)
  Receive Date: 20200706
  Receipt Date: 20200706
  Transmission Date: 20201103
  Serious: Yes (Hospitalization)
  Sender: FDA-Public Use
  Company Number: FR-MYLANLABS-2020M1060073

PATIENT
  Age: 7 Year
  Sex: Male

DRUGS (1)
  1. METHOTREXATE MYLAN [Suspect]
     Active Substance: METHOTREXATE SODIUM
     Indication: BRAIN STEM GLIOMA
     Dosage: 11856 MILLIGRAM, CYCLE
     Route: 042
     Dates: start: 20200228, end: 20200228

REACTIONS (6)
  - Hepatocellular injury [Recovered/Resolved]
  - Somnolence [Recovered/Resolved]
  - Accidental overdose [Recovered/Resolved]
  - Mucosal inflammation [Recovered/Resolved]
  - Acute kidney injury [Recovered/Resolved]
  - Acute hepatic failure [Recovered/Resolved]

NARRATIVE: CASE EVENT DATE: 20200229
